FAERS Safety Report 4275156-4 (Version None)
Quarter: 2004Q1

REPORT INFORMATION
  Report Type: 
  Country: None (occurrence: None)
  Receive Date: 20040121
  Receipt Date: 20030513
  Transmission Date: 20041129
  Serious: Yes (Hospitalization)
  Sender: FDA-Public Use
  Company Number: PHHO2003CH06028

PATIENT
  Age: 75 Year
  Sex: Female
  Weight: 76 kg

DRUGS (7)
  1. ZOLEDRONATE VS PLACEBO [Suspect]
     Indication: OSTEOPOROSIS POSTMENOPAUSAL
     Dosage: UNK, UNK
     Route: 042
     Dates: start: 20030509, end: 20030509
  2. CALCIUM [Concomitant]
     Indication: OSTEOPOROSIS POSTMENOPAUSAL
  3. VITAMIN D [Concomitant]
     Indication: OSTEOPOROSIS POSTMENOPAUSAL
  4. MADOPAR [Suspect]
     Indication: PARKINSON'S DISEASE
     Dosage: 250 MG, UNK
  5. COZAAR [Concomitant]
  6. MODURETIC 5-50 [Concomitant]
     Dosage: UNK, PRN
  7. MADOPAR [Concomitant]

REACTIONS (10)
  - ARTHRALGIA [None]
  - ASTHENIA [None]
  - BLOOD CREATINE PHOSPHOKINASE INCREASED [None]
  - CHILLS [None]
  - EXCORIATION [None]
  - FALL [None]
  - HALLUCINATION [None]
  - MYALGIA [None]
  - MYOSITIS [None]
  - TREMOR [None]
